FAERS Safety Report 14961240 (Version 1)
Quarter: 2018Q2

REPORT INFORMATION
  Report Type: Spontaneous
  Country: US (occurrence: US)
  Receive Date: 20180601
  Receipt Date: 20180601
  Transmission Date: 20180711
  Serious: Yes (Hospitalization)
  Sender: FDA-Public Use
  Company Number: US-BIOGEN-2018BI00586182

PATIENT
  Sex: Female

DRUGS (1)
  1. AVONEX [Suspect]
     Active Substance: INTERFERON BETA-1A
     Indication: MULTIPLE SCLEROSIS
     Route: 065
     Dates: start: 20120824

REACTIONS (6)
  - Clavicle fracture [Unknown]
  - Upper limb fracture [Unknown]
  - Intervertebral disc protrusion [Unknown]
  - Contusion [Unknown]
  - Joint injury [Unknown]
  - Multiple sclerosis relapse [Unknown]
